FAERS Safety Report 19037649 (Version 2)
Quarter: 2021Q2

REPORT INFORMATION
  Report Type: Other
  Country: CA (occurrence: CA)
  Receive Date: 20210322
  Receipt Date: 20210614
  Transmission Date: 20210717
  Serious: Yes (Other)
  Sender: FDA-Public Use
  Company Number: CA-APOTEX-2021AP006319

PATIENT
  Age: 62 Year
  Sex: Female

DRUGS (9)
  1. PREDNISONE. [Suspect]
     Active Substance: PREDNISONE
     Indication: PRODUCT USED FOR UNKNOWN INDICATION
     Dosage: UNK
     Route: 065
  2. ZENHALE [Suspect]
     Active Substance: FORMOTEROL FUMARATE\MOMETASONE FUROATE
     Indication: ASTHMA
     Dosage: UNK, BID
     Route: 065
  3. ACLIDINIUM BROMIDE. [Suspect]
     Active Substance: ACLIDINIUM BROMIDE
     Indication: ASTHMA
     Dosage: 1 DOSAGE FORM, BID
  4. FORMOTEROL;MOMETASONE [Suspect]
     Active Substance: FORMOTEROL\MOMETASONE
     Indication: ASTHMA
     Dosage: 2 DOSAGE FORM, QD
     Route: 065
  5. VENTOLIN [Suspect]
     Active Substance: ALBUTEROL SULFATE
     Indication: ASTHMA
     Dosage: UNK
     Route: 065
  6. SALBUTAMOL [Suspect]
     Active Substance: ALBUTEROL
     Indication: ASTHMA
     Dosage: UNK
     Route: 065
  7. MEPOLIZUMAB [Suspect]
     Active Substance: MEPOLIZUMAB
     Indication: PRODUCT USED FOR UNKNOWN INDICATION
     Dosage: 100 MILLIGRAM
     Route: 042
  8. MEPOLIZUMAB [Suspect]
     Active Substance: MEPOLIZUMAB
     Indication: ASTHMA
  9. TUDORZA GENUAIR [Suspect]
     Active Substance: ACLIDINIUM BROMIDE
     Indication: ASTHMA
     Dosage: 1 DOSAGE FORM, BID
     Route: 065

REACTIONS (14)
  - Illness [Unknown]
  - Joint effusion [Unknown]
  - Loss of personal independence in daily activities [Unknown]
  - Gait disturbance [Unknown]
  - Type 2 diabetes mellitus [Unknown]
  - Pain [Unknown]
  - Hypersensitivity [Unknown]
  - Dyspnoea [Unknown]
  - Asthma [Unknown]
  - Pneumonia [Unknown]
  - Chest pain [Unknown]
  - Therapeutic product effect incomplete [Unknown]
  - Muscle strength abnormal [Unknown]
  - Malaise [Unknown]
